FAERS Safety Report 5179685-0 (Version None)
Quarter: 2006Q4

REPORT INFORMATION
  Report Type: 
  Country: None (occurrence: None)
  Receive Date: 20061211
  Receipt Date: 20061128
  Transmission Date: 20070319
  Serious: Yes (Other)
  Sender: FDA-Public Use
  Company Number: 2005100162

PATIENT
  Age: 52 Year
  Sex: Female
  Weight: 74.8435 kg

DRUGS (2)
  1. DIFLUCAN [Suspect]
     Indication: VAGINAL CANDIDIASIS
     Dosage: 150 MG (150 MG, SINGLE DOSE), ORAL
     Route: 048
     Dates: start: 20050320, end: 20050325
  2. CLIMAVAL (ESTRADIOL VALERATE) [Concomitant]

REACTIONS (9)
  - DRY SKIN [None]
  - PRURITUS [None]
  - RASH ERYTHEMATOUS [None]
  - REACTION TO DRUG EXCIPIENTS [None]
  - SKIN BURNING SENSATION [None]
  - SKIN EXFOLIATION [None]
  - SWELLING FACE [None]
  - SWOLLEN TONGUE [None]
  - URTICARIA GENERALISED [None]
